FAERS Safety Report 8954877 (Version 3)
Quarter: 2013Q2

REPORT INFORMATION
  Report Type: Report from Study
  Country: NZ (occurrence: NZ)
  Receive Date: 20121207
  Receipt Date: 20130423
  Transmission Date: 20140414
  Serious: Yes (Hospitalization, Other)
  Sender: FDA-Public Use
  Company Number: PHHY2012NZ110195

PATIENT
  Sex: Male
  Weight: 114 kg

DRUGS (8)
  1. CLOZARIL [Suspect]
     Indication: SCHIZOPHRENIA
     Dosage: 350 MG, NOCTE
     Route: 048
     Dates: start: 20020227
  2. CLOZARIL [Suspect]
     Dosage: UNK
     Dates: start: 20121017
  3. CLOZARIL [Suspect]
     Dosage: UNK
     Dates: start: 20130108
  4. OLANZAPINE [Concomitant]
     Indication: SCHIZOPHRENIA
     Dosage: 40 MG, QD
     Route: 048
     Dates: start: 20120920, end: 20121010
  5. CITALOPRAM [Concomitant]
     Indication: DEPRESSION
     Dosage: 20 MG, QD
     Route: 048
     Dates: start: 2005
  6. GLICLAZIDE [Concomitant]
     Indication: DIABETES MELLITUS
     Dosage: 160 MG, BID
     Route: 048
     Dates: start: 2005
  7. METFORMIN [Concomitant]
     Indication: DIABETES MELLITUS
     Dosage: 1 G, BID
     Route: 048
     Dates: start: 2004
  8. SIMVASTATIN [Concomitant]
     Indication: DYSLIPIDAEMIA
     Dosage: 10 MG, QD
     Route: 048
     Dates: start: 2008

REACTIONS (12)
  - Psychiatric symptom [Recovering/Resolving]
  - Hallucination, auditory [Recovering/Resolving]
  - Anosognosia [Recovering/Resolving]
  - Delusion [Recovering/Resolving]
  - Mental impairment [Recovering/Resolving]
  - Aggression [Recovering/Resolving]
  - Irritability [Recovering/Resolving]
  - Troponin T increased [Unknown]
  - Dyslipidaemia [Recovering/Resolving]
  - Type 2 diabetes mellitus [Recovering/Resolving]
  - Hypertension [Recovering/Resolving]
  - Antipsychotic drug level below therapeutic [Unknown]
